FAERS Safety Report 6582744-9 (Version None)
Quarter: 2010Q1

REPORT INFORMATION
  Report Type: 
  Country: None (occurrence: None)
  Receive Date: 20100216
  Receipt Date: 20100205
  Transmission Date: 20100710
  Serious: Yes (Other)
  Sender: FDA-Public Use
  Company Number: NO-PFIZER INC-2010009540

PATIENT
  Age: 31 Year
  Sex: Female

DRUGS (2)
  1. AZITROMAX [Suspect]
     Indication: PNEUMONIA
     Dosage: 500 MG, SINGLE
     Route: 048
     Dates: start: 20100115, end: 20100115
  2. CETIRIZINE [Concomitant]
     Indication: URTICARIA CHRONIC

REACTIONS (1)
  - INTRA-UTERINE DEATH [None]
